FAERS Safety Report 6627100-X (Version None)
Quarter: 2010Q1

REPORT INFORMATION
  Report Type: 
  Country: None (occurrence: None)
  Receive Date: 20100311
  Receipt Date: 20090819
  Transmission Date: 20100710
  Serious: No
  Sender: FDA-Public Use
  Company Number: A0803037A

PATIENT
  Age: 64 Year
  Sex: Male

DRUGS (1)
  1. NICORETTE [Suspect]

REACTIONS (3)
  - DYSPEPSIA [None]
  - MALAISE [None]
  - NAUSEA [None]
